FAERS Safety Report 22041602 (Version 1)
Quarter: 2023Q1

REPORT INFORMATION
  Report Type: Spontaneous
  Country: US (occurrence: None)
  Receive Date: 20230224
  Receipt Date: 20230224
  Transmission Date: 20230417
  Serious: No
  Sender: FDA-Public Use
  Company Number: None

PATIENT
  Sex: Female

DRUGS (1)
  1. RASUVO [Suspect]
     Active Substance: METHOTREXATE SODIUM
     Indication: Rheumatoid arthritis
     Dosage: 25MG ONCE EVERY WEEK SUB-Q?
     Route: 058
     Dates: start: 202202

REACTIONS (2)
  - Drug ineffective [None]
  - Rheumatoid arthritis [None]
